FAERS Safety Report 5957424-0 (Version None)
Quarter: 2008Q4

REPORT INFORMATION
  Report Type: 
  Country: None (occurrence: None)
  Receive Date: 20081118
  Receipt Date: 20081106
  Transmission Date: 20090506
  Serious: Yes (Hospitalization)
  Sender: FDA-Public Use
  Company Number: AU-GENENTECH-223457

PATIENT
  Sex: Female
  Weight: 60 kg

DRUGS (3)
  1. BEVACIZUMAB [Suspect]
     Indication: COLORECTAL CANCER METASTATIC
     Dosage: 450 MG, Q3W
     Route: 042
     Dates: start: 20060201
  2. CAPECITABINE [Suspect]
     Indication: COLORECTAL CANCER METASTATIC
     Dosage: 3200 MG, D1-14/Q3W
     Route: 048
     Dates: start: 20060201
  3. ASPIRIN [Concomitant]
     Indication: DRUG USE FOR UNKNOWN INDICATION

REACTIONS (8)
  - ANOREXIA [None]
  - BLOOD BILIRUBIN INCREASED [None]
  - CREATININE RENAL CLEARANCE DECREASED [None]
  - DEHYDRATION [None]
  - DIARRHOEA [None]
  - FATIGUE [None]
  - NAUSEA [None]
  - PLATELET COUNT INCREASED [None]
